FAERS Safety Report 16574857 (Version 2)
Quarter: 2019Q3

REPORT INFORMATION
  Report Type: Spontaneous
  Country: US (occurrence: US)
  Receive Date: 20190715
  Receipt Date: 20190823
  Transmission Date: 20191004
  Serious: No
  Sender: FDA-Public Use
  Company Number: US-ASTRAZENECA-2019SE34262

PATIENT
  Sex: Female
  Weight: 50.3 kg

DRUGS (3)
  1. SYMBICORT [Suspect]
     Active Substance: BUDESONIDE\FORMOTEROL FUMARATE DIHYDRATE
     Indication: CHRONIC OBSTRUCTIVE PULMONARY DISEASE
     Dosage: 160-4.5 MCG, TWO PUFFS TWO TIMES A DAY
     Route: 055
     Dates: start: 201906
  2. SYMBICORT [Suspect]
     Active Substance: BUDESONIDE\FORMOTEROL FUMARATE DIHYDRATE
     Indication: CHRONIC OBSTRUCTIVE PULMONARY DISEASE
     Dosage: 160-4.5 MCG, TWO PUFFS TWO TIMES A DAY
     Route: 055
     Dates: start: 201803
  3. SYMBICORT [Suspect]
     Active Substance: BUDESONIDE\FORMOTEROL FUMARATE DIHYDRATE
     Indication: CHRONIC OBSTRUCTIVE PULMONARY DISEASE
     Dosage: 160-4.5 MCG, TWO PUFFS TWO TIMES A DAY
     Route: 055
     Dates: start: 20190210

REACTIONS (5)
  - Device malfunction [Unknown]
  - Product packaging quantity issue [Unknown]
  - Bronchitis [Unknown]
  - Device failure [Unknown]
  - Intentional device misuse [Unknown]
